FAERS Safety Report 9964807 (Version 1)
Quarter: 2014Q1

REPORT INFORMATION
  Report Type: Spontaneous
  Country: US (occurrence: US)
  Receive Date: 20140305
  Receipt Date: 20140305
  Transmission Date: 20141002
  Serious: No
  Sender: FDA-Public Use
  Company Number: US-AMGEN-USASP2014000025

PATIENT
  Age: 47 Year
  Sex: Female

DRUGS (8)
  1. ENBREL [Suspect]
     Indication: RHEUMATOID ARTHRITIS
     Dosage: 50 MG, UNK
     Route: 058
     Dates: start: 201307
  2. TAMIFLU [Concomitant]
     Dosage: UNK
  3. CYMBALTA [Concomitant]
     Dosage: UNK
  4. GABAPENTIN [Concomitant]
     Dosage: UNK
  5. MELOXICAM [Concomitant]
     Dosage: UNK
  6. LEVOTHROID [Concomitant]
     Dosage: UNK
  7. FLEXERIL                           /00428402/ [Concomitant]
     Dosage: UNK
  8. CARAFATE [Concomitant]
     Dosage: UNK

REACTIONS (2)
  - Carpal tunnel syndrome [Unknown]
  - H1N1 influenza [Unknown]
